FAERS Safety Report 8107942-4 (Version None)
Quarter: 2012Q1

REPORT INFORMATION
  Report Type: 
  Country: None (occurrence: None)
  Receive Date: 20120202
  Receipt Date: 20120124
  Transmission Date: 20120608
  Serious: Yes (Other)
  Sender: FDA-Public Use
  Company Number: US-MERCK-1109USA01914

PATIENT
  Age: 43 Year
  Sex: Male
  Weight: 93 kg

DRUGS (6)
  1. DIOVAN [Concomitant]
     Indication: HYPERTENSION
     Route: 065
     Dates: start: 20000101
  2. FOSAMAX [Suspect]
     Indication: OSTEOPOROSIS
     Route: 048
     Dates: start: 20090201, end: 20100101
  3. ENBREL [Concomitant]
     Indication: RHEUMATOID ARTHRITIS
     Route: 065
     Dates: start: 20060101
  4. REMICADE [Concomitant]
     Indication: RHEUMATOID ARTHRITIS
     Route: 065
     Dates: end: 20090101
  5. ALENDRONATE SODIUM [Suspect]
     Route: 048
     Dates: end: 20100901
  6. PREDNISONE TAB [Suspect]
     Indication: RHEUMATOID ARTHRITIS
     Route: 065
     Dates: start: 20060101

REACTIONS (53)
  - LUPUS-LIKE SYNDROME [None]
  - HAEMATURIA [None]
  - TRIGEMINAL NEURALGIA [None]
  - BLOOD TESTOSTERONE DECREASED [None]
  - ORAL TORUS [None]
  - NERVOUSNESS [None]
  - CONSTIPATION [None]
  - BLINDNESS [None]
  - OROPHARYNGEAL PAIN [None]
  - OSTEOMYELITIS [None]
  - DIVERTICULUM [None]
  - ADRENAL INSUFFICIENCY [None]
  - BIPOLAR DISORDER [None]
  - LOCALISED INFECTION [None]
  - TOOTH DISORDER [None]
  - ORAL CANDIDIASIS [None]
  - NIGHT SWEATS [None]
  - AGITATION [None]
  - CYSTITIS [None]
  - ARTHRALGIA [None]
  - FACIAL PAIN [None]
  - RENAL DISORDER [None]
  - MENTAL DISORDER [None]
  - DRY MOUTH [None]
  - ORAL DISORDER [None]
  - BREAST MASS [None]
  - MYOCARDIAL INFARCTION [None]
  - ANKYLOSING SPONDYLITIS [None]
  - FATIGUE [None]
  - WEIGHT INCREASED [None]
  - TEMPOROMANDIBULAR JOINT SYNDROME [None]
  - CHEST PAIN [None]
  - ABDOMINAL PAIN UPPER [None]
  - JAW FRACTURE [None]
  - IMPAIRED HEALING [None]
  - POLYP [None]
  - VASCULITIS [None]
  - CONTUSION [None]
  - HYPOGONADISM [None]
  - FIBROMYALGIA [None]
  - TEMPERATURE INTOLERANCE [None]
  - TONSILLAR DISORDER [None]
  - OEDEMA [None]
  - CHILLS [None]
  - OSTEONECROSIS OF JAW [None]
  - AORTIC ARTERIOSCLEROSIS [None]
  - DYSURIA [None]
  - INSOMNIA [None]
  - POOR PERSONAL HYGIENE [None]
  - ABDOMINAL HERNIA [None]
  - TYPE 2 DIABETES MELLITUS [None]
  - ORAL DISCHARGE [None]
  - MENOPAUSE [None]
